FAERS Safety Report 12287275 (Version 1)
Quarter: 2016Q2

REPORT INFORMATION
  Report Type: Spontaneous
  Country: CN (occurrence: CN)
  Receive Date: 20160420
  Receipt Date: 20160420
  Transmission Date: 20160815
  Serious: Yes (Other)
  Sender: FDA-Public Use
  Company Number: CN-JNJFOC-20160412566

PATIENT

DRUGS (1)
  1. TOPIRAMATE. [Suspect]
     Active Substance: TOPIRAMATE
     Indication: EPILEPSY
     Dosage: INITIAL DOSE WAS 0.5-1.0MG.DOSE WAS INCREASED TO 0.5-1.0MG/WEEK, AND MAINTAINED AT 4-5MG BID.
     Route: 048

REACTIONS (5)
  - Asthenia [Unknown]
  - Anger [Unknown]
  - Pyrexia [Unknown]
  - Decreased appetite [Unknown]
  - Brain injury [Unknown]
